FAERS Safety Report 4275092-3 (Version None)
Quarter: 2004Q1

REPORT INFORMATION
  Report Type: 
  Country: None (occurrence: None)
  Receive Date: 20040116
  Receipt Date: 20040108
  Transmission Date: 20041129
  Serious: Yes (Other)
  Sender: FDA-Public Use
  Company Number: 2003124870

PATIENT
  Age: 70 Year
  Sex: Female

DRUGS (1)
  1. UNASYN [Suspect]
     Indication: INFECTION PROPHYLAXIS
     Dosage: 3 GRAM (BID), INTRAVENOUS
     Route: 042
     Dates: start: 20031125, end: 20031128

REACTIONS (2)
  - BLOOD PRESSURE DECREASED [None]
  - RENAL TUBULAR DISORDER [None]
